FAERS Safety Report 16133823 (Version 1)
Quarter: 2019Q1

REPORT INFORMATION
  Report Type: Spontaneous
  Country: US (occurrence: US)
  Receive Date: 20190329
  Receipt Date: 20190329
  Transmission Date: 20190418
  Serious: Yes (Hospitalization)
  Sender: FDA-Public Use
  Company Number: US-PURDUE-USA-2019-0146654

PATIENT
  Sex: Female

DRUGS (1)
  1. DILAUDID [Suspect]
     Active Substance: HYDROMORPHONE HYDROCHLORIDE
     Indication: PAIN
     Dosage: 4 MG, Q4- 6H
     Route: 048

REACTIONS (3)
  - Hypertension [Unknown]
  - Inadequate analgesia [Unknown]
  - Hernia [Unknown]

NARRATIVE: CASE EVENT DATE: 201809
